FAERS Safety Report 5643290-X (Version None)
Quarter: 2008Q1

REPORT INFORMATION
  Report Type: 
  Country: None (occurrence: None)
  Receive Date: 20080228
  Receipt Date: 20080217
  Transmission Date: 20080703
  Serious: Yes (Other)
  Sender: FDA-Public Use
  Company Number: US-JNJFOC-20080204612

PATIENT
  Sex: Female
  Weight: 81.19 kg

DRUGS (4)
  1. DURAGESIC-100 [Suspect]
     Route: 062
  2. DURAGESIC-100 [Suspect]
     Dosage: 2X 25UG/HR PATCHES
     Route: 062
  3. DURAGESIC-100 [Suspect]
     Indication: BACK DISORDER
     Route: 062
  4. ALBUTEROL [Concomitant]
     Indication: ASTHMA
     Route: 055

REACTIONS (11)
  - ANAPHYLACTIC SHOCK [None]
  - FATIGUE [None]
  - HYPERHIDROSIS [None]
  - HYPERTENSION [None]
  - INADEQUATE ANALGESIA [None]
  - MALAISE [None]
  - RESPIRATION ABNORMAL [None]
  - SEDATION [None]
  - TREATMENT NONCOMPLIANCE [None]
  - TREMOR [None]
  - VOMITING [None]
